FAERS Safety Report 5682217-1 (Version None)
Quarter: 2008Q1

REPORT INFORMATION
  Report Type: 
  Country: None (occurrence: None)
  Receive Date: 20080327
  Receipt Date: 20080325
  Transmission Date: 20080703
  Serious: Yes (Life-Threatening, Hospitalization, Other)
  Sender: FDA-Public Use
  Company Number: HQWYE946230AUG07

PATIENT
  Sex: Male
  Weight: 21 kg

DRUGS (1)
  1. TEMSIROLIMUS [Suspect]
     Indication: NEUROBLASTOMA
     Route: 042
     Dates: start: 20070720, end: 20070827

REACTIONS (1)
  - ANGINA PECTORIS [None]
